FAERS Safety Report 24885369 (Version 1)
Quarter: 2025Q1

REPORT INFORMATION
  Report Type: Spontaneous
  Country: US (occurrence: US)
  Receive Date: 20250124
  Receipt Date: 20250124
  Transmission Date: 20250408
  Serious: Yes (Disabling, Other)
  Sender: REGENERON
  Company Number: US-REGENERON PHARMACEUTICALS, INC.-2025-020420

PATIENT
  Sex: Male

DRUGS (7)
  1. EYLEA [Suspect]
     Active Substance: AFLIBERCEPT
     Indication: Macular degeneration
     Dosage: 2 MG, ONCE A MONTH INTO BOTH EYES (PATIENT ON TREATMENT FOR BOTH EYES), FORMULATION: UNKNOWN
     Dates: start: 2017
  2. EYLEA [Suspect]
     Active Substance: AFLIBERCEPT
  3. EYLEA [Suspect]
     Active Substance: AFLIBERCEPT
  4. NOVOLOG [Concomitant]
     Active Substance: INSULIN ASPART
     Indication: Product used for unknown indication
     Dosage: 10 UNITS THREE TIMES A DAY
  5. TOUJEO [Concomitant]
     Active Substance: INSULIN GLARGINE
     Indication: Product used for unknown indication
     Dosage: 46 UNITS IN THE MORNING AND 42 UNITS IN THE EVENING
  6. TOUJEO [Concomitant]
     Active Substance: INSULIN GLARGINE
  7. OZEMPIC [Concomitant]
     Active Substance: SEMAGLUTIDE
     Indication: Product used for unknown indication

REACTIONS (4)
  - Renal failure [Unknown]
  - Leg amputation [Unknown]
  - Visual impairment [Unknown]
  - Impaired driving ability [Unknown]
